FAERS Safety Report 5572389-1 (Version None)
Quarter: 2007Q4

REPORT INFORMATION
  Report Type: 
  Country: None (occurrence: None)
  Receive Date: 20071222
  Receipt Date: 20071212
  Transmission Date: 20080405
  Serious: Yes (Other)
  Sender: FDA-Public Use
  Company Number: US-PFIZER INC-2007076437

PATIENT
  Sex: Female
  Weight: 48.1 kg

DRUGS (4)
  1. LIPITOR [Suspect]
     Indication: BLOOD CHOLESTEROL
     Dates: start: 20070101, end: 20070601
  2. AROMASIN [Suspect]
     Indication: BREAST CANCER
  3. ANASTROZOLE [Suspect]
     Indication: BREAST CANCER
     Dates: start: 20070514, end: 20070601
  4. ALL OTHER THERAPEUTIC PRODUCTS [Suspect]

REACTIONS (7)
  - ARTHRITIS [None]
  - BREAST CANCER [None]
  - COUGH [None]
  - HEPATIC ENZYME INCREASED [None]
  - MUSCLE SPASMS [None]
  - PAIN IN EXTREMITY [None]
  - PARAESTHESIA [None]
